FAERS Safety Report 9233572 (Version 1)
Quarter: 2013Q2

REPORT INFORMATION
  Report Type: Spontaneous
  Country: US (occurrence: US)
  Receive Date: 20130416
  Receipt Date: 20130416
  Transmission Date: 20140414
  Serious: No
  Sender: FDA-Public Use
  Company Number: US-BANPHARM-20120351

PATIENT
  Age: 90 Year
  Sex: Female
  Weight: 72.6 kg

DRUGS (1)
  1. ALEVE LIQUID GELS 220 MG [Suspect]
     Dosage: 1 DF, QD,
     Route: 048
     Dates: start: 2011, end: 201211

REACTIONS (1)
  - Diarrhoea [Recovered/Resolved]
